FAERS Safety Report 23701183 (Version 3)
Quarter: 2024Q3

REPORT INFORMATION
  Report Type: Report from Study
  Country: NL (occurrence: NL)
  Receive Date: 20240403
  Receipt Date: 20240927
  Transmission Date: 20241016
  Serious: Yes (Hospitalization, Other)
  Sender: BAXTER
  Company Number: NL-BAXTER-2024BAX015955

PATIENT
  Age: 77 Year
  Sex: Female
  Weight: 57.5 kg

DRUGS (19)
  1. CYCLOPHOSPHAMIDE [Suspect]
     Active Substance: CYCLOPHOSPHAMIDE
     Indication: Diffuse large B-cell lymphoma
     Dosage: 600 MG, EVERY 3 WEEKS
     Route: 042
     Dates: start: 20231204, end: 20240229
  2. EPCORITAMAB [Suspect]
     Active Substance: EPCORITAMAB
     Indication: Diffuse large B-cell lymphoma
     Dosage: UNK, DRUG NOT ADMINISTERED
     Route: 065
  3. VINCRISTINE [Suspect]
     Active Substance: VINCRISTINE
     Indication: Diffuse large B-cell lymphoma
     Dosage: 1 MG, EVERY 3 WEEKS
     Route: 042
     Dates: start: 20231204, end: 20240208
  4. RITUXIMAB [Suspect]
     Active Substance: RITUXIMAB
     Indication: Diffuse large B-cell lymphoma
     Dosage: 600 MG, EVERY 3 WEEKS
     Route: 042
     Dates: start: 20231204, end: 20240229
  5. RITUXIMAB [Suspect]
     Active Substance: RITUXIMAB
     Dosage: 600 MG, EVERY 3 WEEKS
     Route: 042
     Dates: start: 20240418
  6. PREDNISONE [Suspect]
     Active Substance: PREDNISONE
     Indication: Diffuse large B-cell lymphoma
     Dosage: 100 MG, EVERY 1 DAYS
     Route: 048
     Dates: start: 20231204, end: 20240304
  7. DOXORUBICIN [Suspect]
     Active Substance: DOXORUBICIN
     Indication: Diffuse large B-cell lymphoma
     Dosage: 40 MG, EVERY 3 WEEKS
     Route: 042
     Dates: start: 20231204, end: 20240229
  8. VALACYCLOVIR HYDROCHLORIDE [Concomitant]
     Active Substance: VALACYCLOVIR HYDROCHLORIDE
     Indication: Prophylaxis
     Dosage: 500 MG, 2/DAYS
     Route: 065
     Dates: start: 20231203
  9. VALACYCLOVIR HYDROCHLORIDE [Concomitant]
     Active Substance: VALACYCLOVIR HYDROCHLORIDE
     Indication: Immunosuppression
  10. METOCLOPRAMIDE [Concomitant]
     Active Substance: METOCLOPRAMIDE
     Indication: Prophylaxis of nausea and vomiting
     Dosage: 10 MG, 3/DAYS
     Route: 065
     Dates: start: 20231203
  11. SULFAMETHOXAZOLE\TRIMETHOPRIM [Concomitant]
     Active Substance: SULFAMETHOXAZOLE\TRIMETHOPRIM
     Indication: Prophylaxis
     Dosage: 480 MG, EVERY 1 DAYS
     Route: 065
     Dates: start: 20231203
  12. SULFAMETHOXAZOLE\TRIMETHOPRIM [Concomitant]
     Active Substance: SULFAMETHOXAZOLE\TRIMETHOPRIM
     Indication: Immunosuppression
  13. MOVICOLON [Concomitant]
     Active Substance: POLYETHYLENE GLYCOL 3350\POTASSIUM CHLORIDE\SODIUM BICARBONATE\SODIUM CHLORIDE
     Indication: Constipation
     Dosage: UNK, AS NECESSARY
     Route: 065
     Dates: start: 20231212
  14. ACETAMINOPHEN [Concomitant]
     Active Substance: ACETAMINOPHEN
     Indication: Stomatitis
     Dosage: 1000 MG, AS NECESSARY
     Route: 065
     Dates: start: 20231204
  15. ACETAMINOPHEN [Concomitant]
     Active Substance: ACETAMINOPHEN
     Indication: Pain prophylaxis
     Dosage: 1000 MG, EVERY 8 HOURS
     Route: 065
     Dates: start: 20240126
  16. OMEPRAZOLE [Concomitant]
     Active Substance: OMEPRAZOLE
     Indication: Antacid therapy
     Dosage: 20 MG, EVERY 24 HOURS
     Route: 065
     Dates: start: 20240208
  17. CLEMASTINE [Concomitant]
     Active Substance: CLEMASTINE
     Indication: Prophylaxis
     Dosage: 2 MG, AS NECESSARY
     Route: 065
     Dates: start: 20240208
  18. CLEMASTINE [Concomitant]
     Active Substance: CLEMASTINE
     Indication: Hypersensitivity
  19. ONDANSETRON [Concomitant]
     Active Substance: ONDANSETRON
     Indication: Prophylaxis of nausea and vomiting
     Dosage: 8 MG, AS NECESSARY
     Route: 065
     Dates: start: 20231203, end: 20240229

REACTIONS (1)
  - Hip fracture [Recovered/Resolved]

NARRATIVE: CASE EVENT DATE: 20240308
